FAERS Safety Report 17725071 (Version 5)
Quarter: 2020Q4

REPORT INFORMATION
  Report Type: Spontaneous
  Country: CO (occurrence: CO)
  Receive Date: 20200429
  Receipt Date: 20201216
  Transmission Date: 20210113
  Serious: Yes (Other)
  Sender: FDA-Public Use
  Company Number: CO-PFIZER INC-2020171914

PATIENT
  Age: 70 Year
  Sex: Female

DRUGS (2)
  1. REAMPLA [Suspect]
     Active Substance: PALBOCICLIB
     Indication: BREAST CANCER STAGE IV
     Dosage: 125 MG
     Route: 048
     Dates: start: 20190329
  2. FULVESTRANT. [Concomitant]
     Active Substance: FULVESTRANT
     Dosage: UNK

REACTIONS (9)
  - Tumour haemorrhage [Unknown]
  - Mood altered [Unknown]
  - Hypoaesthesia [Unknown]
  - Illness [Unknown]
  - Neoplasm progression [Unknown]
  - Infected neoplasm [Unknown]
  - Fatigue [Unknown]
  - Pain in extremity [Unknown]
  - Asthenia [Unknown]
